FAERS Safety Report 6284948-1 (Version None)
Quarter: 2009Q3

REPORT INFORMATION
  Report Type: 
  Country: None (occurrence: None)
  Receive Date: 20090723
  Receipt Date: 20090721
  Transmission Date: 20100115
  Serious: Yes (Other)
  Sender: FDA-Public Use
  Company Number: GB-1170156

PATIENT
  Age: 66 Year
  Sex: Male

DRUGS (9)
  1. TIMOLOL MEALEATE     (TIMOLOL MALEATE) 0.5 % OPHTHALMIC SOLUTION EYE D [Suspect]
     Indication: GLAUCOMA
     Dosage: 1 / 1 DAYS, OPHTHALMIC
     Route: 047
     Dates: start: 20080919, end: 20090201
  2. AMITRIPTYLINE HYDROCHLORIDE [Concomitant]
  3. BENDROFLUMETHIAZIDE (BENDROFLUMETHIAZIDE) [Concomitant]
  4. LATANOPROST [Concomitant]
  5. NAPROXEN [Concomitant]
  6. OMEPRAZOLE [Concomitant]
  7. PARACETAMOL (PARACETAMOL) [Concomitant]
  8. TAMSULOSIN HCL [Concomitant]
  9. TRAMADOL HCL [Concomitant]

REACTIONS (3)
  - FROSTBITE [None]
  - NAIL DISCOLOURATION [None]
  - PERIPHERAL ISCHAEMIA [None]
